FAERS Safety Report 4822728-1 (Version None)
Quarter: 2005Q4

REPORT INFORMATION
  Report Type: 
  Country: None (occurrence: None)
  Receive Date: 20051104
  Receipt Date: 20051024
  Transmission Date: 20060501
  Serious: Yes (Other)
  Sender: FDA-Public Use
  Company Number: 2005JP002088

PATIENT
  Age: 39 Year
  Sex: Female

DRUGS (5)
  1. PROGRAF [Suspect]
     Indication: RENAL TRANSPLANT
     Dates: start: 20040101
  2. MYCOPHENOLATE MOFETIL (MYCOPHENOLATE MOFETIL) [Concomitant]
  3. BASILIXIMAB (BASILIXIMAB) [Concomitant]
  4. METHYLPREDNISOLONE [Concomitant]
  5. CILOSTAZOL (CILOSTAZOL) PER ORAL [Concomitant]

REACTIONS (8)
  - COMPLICATIONS OF TRANSPLANTED KIDNEY [None]
  - CYTOMEGALOVIRUS ANTIGEN POSITIVE [None]
  - HAEMODIALYSIS [None]
  - PNEUMONIA MYCOPLASMAL [None]
  - PNEUMONIA PRIMARY ATYPICAL [None]
  - PULMONARY ALVEOLAR HAEMORRHAGE [None]
  - RESPIRATORY TRACT INFECTION [None]
  - VITAMIN C DEFICIENCY [None]
